FAERS Safety Report 7588455-5 (Version None)
Quarter: 2011Q3

REPORT INFORMATION
  Report Type: 
  Country: None (occurrence: None)
  Receive Date: 20110705
  Receipt Date: 20110606
  Transmission Date: 20111222
  Serious: Yes (Other)
  Sender: FDA-Public Use
  Company Number: US-BAYER-2011-000588

PATIENT
  Age: 26 Year
  Sex: Female
  Weight: 99.7 kg

DRUGS (7)
  1. KEFLEX [Concomitant]
     Dosage: 500 MG, UNK
  2. YASMIN [Suspect]
     Indication: ACNE
     Dosage: UNK
     Dates: start: 20070101, end: 20080101
  3. BUSPAR [Concomitant]
     Dosage: 15 MG, UNK
  4. FLEXERIL [Concomitant]
     Dosage: 10 MG, UNK
  5. TOPIRAMATE [Concomitant]
  6. IBUPROFEN [Concomitant]
  7. ANAPLEX DM [Concomitant]

REACTIONS (4)
  - PAIN [None]
  - GALLBLADDER DISORDER [None]
  - CHOLECYSTITIS CHRONIC [None]
  - INJURY [None]
